FAERS Safety Report 9206557 (Version 2)
Quarter: 2013Q2

REPORT INFORMATION
  Report Type: Spontaneous
  Country: FR (occurrence: FR)
  Receive Date: 20130403
  Receipt Date: 20130403
  Transmission Date: 20140414
  Serious: Yes (Death, Other)
  Sender: FDA-Public Use
  Company Number: FR-JNJFOC-20130317239

PATIENT
  Sex: Female

DRUGS (5)
  1. DOXORUBICIN HYDROCHLORIDE [Suspect]
     Indication: SARCOMA UTERUS
     Dosage: ON DAY 1
     Route: 042
  2. IFOSFAMIDE [Suspect]
     Indication: SARCOMA UTERUS
     Dosage: 3G/M2 ON DAY 1 AND 2
     Route: 065
  3. MESNA [Suspect]
     Indication: SARCOMA UTERUS
     Dosage: 3 G/ M2 PER DAY ON DAY 1 AND 2
     Route: 065
  4. CISPLATIN [Suspect]
     Indication: SARCOMA UTERUS
     Dosage: ON DAY 3
     Route: 065
  5. LENOGRASTIM [Suspect]
     Indication: SARCOMA UTERUS
     Dosage: PER DAY, ON DAY 7-14
     Route: 065

REACTIONS (8)
  - Febrile neutropenia [Fatal]
  - Vomiting [Unknown]
  - Neutropenia [Unknown]
  - Nausea [Unknown]
  - Anaemia [Unknown]
  - Febrile neutropenia [Unknown]
  - Thrombocytopenia [Unknown]
  - Off label use [Unknown]
